FAERS Safety Report 12381861 (Version 1)
Quarter: 2016Q2

REPORT INFORMATION
  Report Type: Report from Study
  Country: US (occurrence: US)
  Receive Date: 20160518
  Receipt Date: 20160518
  Transmission Date: 20160815
  Serious: Yes (Other)
  Sender: FDA-Public Use
  Company Number: US-PURDUE PHARMA-USA-2015-0123117

PATIENT
  Sex: Female

DRUGS (2)
  1. OXYCONTIN [Suspect]
     Active Substance: OXYCODONE HYDROCHLORIDE
     Indication: SPINAL DISORDER
     Dosage: 20 MG, UNK
     Route: 048
     Dates: start: 201007
  2. OXYCONTIN [Suspect]
     Active Substance: OXYCODONE HYDROCHLORIDE
     Dosage: 20 MG, Q12H
     Route: 048
     Dates: start: 2001

REACTIONS (4)
  - Spinal cord operation [Recovered/Resolved]
  - Spinal fracture [Unknown]
  - Pain [Unknown]
  - Spinal rod insertion [Recovered/Resolved]

NARRATIVE: CASE EVENT DATE: 2008
